FAERS Safety Report 13530095 (Version 1)
Quarter: 2017Q2

REPORT INFORMATION
  Report Type: Spontaneous
  Country: JP (occurrence: US)
  Receive Date: 20170509
  Receipt Date: 20170509
  Transmission Date: 20170830
  Serious: No
  Sender: FDA-Public Use
  Company Number: JP-UCBSA-2016021024

PATIENT
  Sex: Female

DRUGS (1)
  1. NEUPRO [Suspect]
     Active Substance: ROTIGOTINE
     Indication: PRODUCT USED FOR UNKNOWN INDICATION
     Dosage: 18 MG (2X9 MG PATCHES)

REACTIONS (4)
  - Blood pressure fluctuation [Unknown]
  - Dyspnoea [Unknown]
  - Syncope [Unknown]
  - Heart rate decreased [Unknown]
